FAERS Safety Report 9249551 (Version 1)
Quarter: 2013Q2

REPORT INFORMATION
  Report Type: Spontaneous
  Country: DK (occurrence: AU)
  Receive Date: 20130423
  Receipt Date: 20130423
  Transmission Date: 20140414
  Serious: Yes (Hospitalization)
  Sender: FDA-Public Use
  Company Number: AU-FRI-1000044541

PATIENT
  Age: 44 Year
  Sex: Male

DRUGS (2)
  1. LEXAPRO [Suspect]
     Indication: DEPRESSION
     Dosage: 20 MG
     Route: 048
  2. SOMAC [Suspect]
     Dosage: 20 MG
     Dates: start: 201111

REACTIONS (1)
  - Pleural effusion [Not Recovered/Not Resolved]
